FAERS Safety Report 24981909 (Version 1)
Quarter: 2025Q1

REPORT INFORMATION
  Report Type: Report from Study
  Country: PH (occurrence: PH)
  Receive Date: 20250218
  Receipt Date: 20250218
  Transmission Date: 20250409
  Serious: Yes (Death)
  Sender: OTSUKA
  Company Number: PH-OTSUKA-2024_030462

PATIENT
  Sex: Male

DRUGS (2)
  1. TOLVAPTAN [Suspect]
     Active Substance: TOLVAPTAN
     Indication: Swelling
     Dosage: 1 DF, QW (15 MG 1 TABLET ONCE A WEEK)
     Route: 065
  2. TOLVAPTAN [Suspect]
     Active Substance: TOLVAPTAN
     Dosage: 1 DF, QD (15 MG 1 TABLET A DAY)
     Route: 048
     Dates: start: 202410, end: 202411

REACTIONS (2)
  - Myocardial infarction [Fatal]
  - Inappropriate schedule of product administration [Unknown]
